FAERS Safety Report 6318059-3 (Version None)
Quarter: 2009Q3

REPORT INFORMATION
  Report Type: 
  Country: None (occurrence: None)
  Receive Date: 20090820
  Receipt Date: 20090820
  Transmission Date: 20100115
  Serious: No
  Sender: FDA-Public Use
  Company Number: None

PATIENT
  Age: 63 Year
  Sex: Male
  Weight: 105.2 kg

DRUGS (1)
  1. LORAZEPAM [Suspect]
     Dosage: 1 MG PRN PO
     Route: 048
     Dates: start: 20090612, end: 20090612

REACTIONS (2)
  - CONFUSIONAL STATE [None]
  - HALLUCINATION [None]
